FAERS Safety Report 15153646 (Version 1)
Quarter: 2018Q3

REPORT INFORMATION
  Report Type: Spontaneous
  Country: US (occurrence: US)
  Receive Date: 20180717
  Receipt Date: 20180717
  Transmission Date: 20181010
  Serious: No
  Sender: FDA-Public Use
  Company Number: US-GLAXOSMITHKLINE-US2018124892

PATIENT
  Sex: Male

DRUGS (2)
  1. WELLBUTRIN SR [Suspect]
     Active Substance: BUPROPION HYDROCHLORIDE
     Indication: EX-TOBACCO USER
     Dosage: 150 ML, BID
     Route: 048
  2. WELLBUTRIN SR [Suspect]
     Active Substance: BUPROPION HYDROCHLORIDE
     Indication: WEIGHT DECREASED

REACTIONS (3)
  - Dry mouth [Unknown]
  - Product use in unapproved indication [Unknown]
  - Amphetamines positive [Unknown]
